FAERS Safety Report 22201739 (Version 1)
Quarter: 2023Q2

REPORT INFORMATION
  Report Type: Spontaneous
  Country: US (occurrence: US)
  Receive Date: 20230412
  Receipt Date: 20230412
  Transmission Date: 20230722
  Serious: No
  Sender: FDA-Public Use
  Company Number: US-SA-SAC20230410000049

PATIENT
  Age: 59 Year
  Sex: Female
  Weight: 89.811 kg

DRUGS (20)
  1. DUPIXENT [Suspect]
     Active Substance: DUPILUMAB
     Indication: Dermatitis atopic
     Dosage: 300 MG, QOW
     Route: 058
     Dates: start: 20230228
  2. GLIPIZIDE [Concomitant]
     Active Substance: GLIPIZIDE
  3. NIACIN [Concomitant]
     Active Substance: NIACIN
  4. FUROSEMIDE [Concomitant]
     Active Substance: FUROSEMIDE
  5. LIDODERM [Concomitant]
     Active Substance: LIDOCAINE
  6. GABAPENTIN [Concomitant]
     Active Substance: GABAPENTIN
  7. BENADRYL [Concomitant]
     Active Substance: DIPHENHYDRAMINE HYDROCHLORIDE
  8. MONTELUKAST SODIUM [Concomitant]
     Active Substance: MONTELUKAST SODIUM
  9. LISINOPRIL [Concomitant]
     Active Substance: LISINOPRIL
  10. ASPIRIN [Concomitant]
     Active Substance: ASPIRIN
  11. CLONAZEPAM [Concomitant]
     Active Substance: CLONAZEPAM
  12. LEVOTHYROXINE [Concomitant]
     Active Substance: LEVOTHYROXINE
  13. NEXIUM [Concomitant]
     Active Substance: ESOMEPRAZOLE MAGNESIUM
  14. ADVAIR HFA [Concomitant]
     Active Substance: FLUTICASONE PROPIONATE\SALMETEROL XINAFOATE
  15. PROVENTIL HFA [SALBUTAMOL] [Concomitant]
  16. CYMBALTA [Concomitant]
     Active Substance: DULOXETINE HYDROCHLORIDE
  17. SKYRIZI [Concomitant]
     Active Substance: RISANKIZUMAB-RZAA
  18. MAGNESIUM [Concomitant]
     Active Substance: MAGNESIUM
  19. CRANBERRY [Concomitant]
     Active Substance: CRANBERRY
  20. PROBI [Concomitant]
     Dosage: UNK

REACTIONS (1)
  - Therapeutic product effect incomplete [Unknown]

NARRATIVE: CASE EVENT DATE: 20230101
